FAERS Safety Report 26175236 (Version 2)
Quarter: 2025Q4

REPORT INFORMATION
  Report Type: Spontaneous
  Country: JP (occurrence: JP)
  Receive Date: 20251218
  Receipt Date: 20251229
  Transmission Date: 20260117
  Serious: Yes (Hospitalization)
  Sender: OTSUKA
  Company Number: JP-MMM-Otsuka-1S5BQ6PN

PATIENT
  Age: 6 Decade
  Sex: Male

DRUGS (1)
  1. ABILIFY [Suspect]
     Active Substance: ARIPIPRAZOLE
     Indication: Schizophrenia
     Dosage: 400 MG/SHOT, QM
     Dates: end: 202509

REACTIONS (5)
  - Malaise [Unknown]
  - Neuroleptic malignant syndrome [Recovered/Resolved]
  - Malnutrition [Recovered/Resolved]
  - Dehydration [Recovered/Resolved]
  - Nasopharyngitis [Recovered/Resolved]

NARRATIVE: CASE EVENT DATE: 20250901
